FAERS Safety Report 18369567 (Version 1)
Quarter: 2020Q4

REPORT INFORMATION
  Report Type: Spontaneous
  Country: US (occurrence: US)
  Receive Date: 20201012
  Receipt Date: 20201012
  Transmission Date: 20210114
  Serious: No
  Sender: FDA-Public Use
  Company Number: US-SA-2020SA280529

PATIENT

DRUGS (2)
  1. DUPIXENT [Suspect]
     Active Substance: DUPILUMAB
     Dosage: UNK, ANOTHER LOADING DOSE
     Dates: start: 20201005, end: 20201005
  2. DUPIXENT [Suspect]
     Active Substance: DUPILUMAB
     Dosage: 300 MG, 1X
     Dates: start: 202009, end: 202009

REACTIONS (6)
  - Product use issue [Unknown]
  - Off label use [Unknown]
  - Rash [Unknown]
  - Incorrect route of product administration [Unknown]
  - Injection site swelling [Unknown]
  - Injection site rash [Unknown]

NARRATIVE: CASE EVENT DATE: 2020
